FAERS Safety Report 7088494-7 (Version None)
Quarter: 2010Q4

REPORT INFORMATION
  Report Type: 
  Country: None (occurrence: None)
  Receive Date: 20101108
  Receipt Date: 20101028
  Transmission Date: 20110411
  Serious: Yes (Hospitalization)
  Sender: FDA-Public Use
  Company Number: US-JNJFOC-20101100743

PATIENT
  Sex: Female
  Weight: 24.5 kg

DRUGS (4)
  1. INFLIXIMAB, RECOMBINANT [Suspect]
     Indication: INFLAMMATORY BOWEL DISEASE
     Route: 042
  2. 6-MERCAPTOPURINE [Suspect]
     Indication: PRODUCT USED FOR UNKNOWN INDICATION
     Route: 065
  3. MESALAMINE [Concomitant]
     Route: 048
  4. PREDNISONE [Concomitant]
     Route: 065

REACTIONS (3)
  - CAMPYLOBACTER INFECTION [None]
  - CLOSTRIDIAL INFECTION [None]
  - VOMITING [None]
